FAERS Safety Report 4822055-2 (Version None)
Quarter: 2005Q4

REPORT INFORMATION
  Report Type: 
  Country: None (occurrence: None)
  Receive Date: 20051103
  Receipt Date: 20051021
  Transmission Date: 20060501
  Serious: Yes (Death, Hospitalization, Other)
  Sender: FDA-Public Use
  Company Number: 2005-DE-04412GD

PATIENT
  Sex: Male

DRUGS (5)
  1. ZIDOVUDINE [Suspect]
     Indication: HIV INFECTION
     Dates: start: 19960901
  2. LAMIVUDINE [Suspect]
     Indication: HIV INFECTION
     Dates: start: 19960901
  3. INDINAVIR (INDINAVIR) [Suspect]
     Indication: HIV INFECTION
     Dates: start: 19960901, end: 19970901
  4. RITONAVIR (RITONAVIR) [Suspect]
     Indication: HIV INFECTION
     Dates: start: 19970901
  5. SAQUINAVIR (SAQUINAVIR) [Suspect]
     Indication: HIV INFECTION
     Dates: start: 19970901

REACTIONS (13)
  - ASCITES [None]
  - CHOLESTASIS [None]
  - DISEASE PROGRESSION [None]
  - GENERALISED OEDEMA [None]
  - HEPATOMEGALY [None]
  - HYPOALBUMINAEMIA [None]
  - HYPOPROTEINAEMIA [None]
  - LYMPHADENOPATHY [None]
  - MYCOBACTERIUM AVIUM COMPLEX INFECTION [None]
  - PERITONITIS [None]
  - PLEURAL EFFUSION [None]
  - PORTAL HYPERTENSION [None]
  - PORTAL VEIN THROMBOSIS [None]
